FAERS Safety Report 5426995-5 (Version None)
Quarter: 2007Q3

REPORT INFORMATION
  Report Type: 
  Country: None (occurrence: None)
  Receive Date: 20070731
  Receipt Date: 20070423
  Transmission Date: 20080115
  Serious: No
  Sender: FDA-Public Use
  Company Number: US200704005219

PATIENT
  Age: 56 Year
  Sex: Male
  Weight: 134.7 kg

DRUGS (20)
  1. BYETTA [Suspect]
     Indication: TYPE 2 DIABETES MELLITUS
     Dosage: 5 UG, 2/D, SUBCUTANEOUS; 10 UG, 2/D, SUBCUTANEOUS
     Route: 058
     Dates: start: 20070222, end: 20070301
  2. BYETTA [Suspect]
     Indication: TYPE 2 DIABETES MELLITUS
     Dosage: 5 UG, 2/D, SUBCUTANEOUS; 10 UG, 2/D, SUBCUTANEOUS
     Route: 058
     Dates: start: 20070301
  3. EXENATIDE [Concomitant]
  4. HUMALOG [Concomitant]
  5. GLUCOPHAGE [Concomitant]
  6. LANTUS [Concomitant]
  7. LOPRESSOR [Concomitant]
  8. NEURONTIN [Concomitant]
  9. FLOMAX [Concomitant]
  10. LASIX [Concomitant]
  11. NORVASC [Concomitant]
  12. AMILORIDE (AMILORIDE) [Concomitant]
  13. PLAVIX [Concomitant]
  14. LIPITOR [Concomitant]
  15. COZAAR [Concomitant]
  16. ALLOPURINOL [Concomitant]
  17. FOLTX (CYANOCOBALAMIN, FOLIC ACID, PYRIDOXINE) [Concomitant]
  18. POTASSIUM CHLORIDE [Concomitant]
  19. IMDUR [Concomitant]
  20. ASPIRIN [Concomitant]

REACTIONS (6)
  - ANGINA PECTORIS [None]
  - DECREASED APPETITE [None]
  - FLUID RETENTION [None]
  - NAUSEA [None]
  - VOMITING PROJECTILE [None]
  - WEIGHT INCREASED [None]
